FAERS Safety Report 9155320 (Version 1)
Quarter: 2013Q1

REPORT INFORMATION
  Report Type: Spontaneous
  Country: FR (occurrence: FR)
  Receive Date: 20130311
  Receipt Date: 20130311
  Transmission Date: 20140127
  Serious: Yes (Hospitalization)
  Sender: FDA-Public Use
  Company Number: FR-ROCHE-1199868

PATIENT
  Sex: Female

DRUGS (9)
  1. LUCENTIS [Suspect]
     Indication: AGE-RELATED MACULAR DEGENERATION
     Dosage: 10 MG/ML
     Route: 050
  2. KARDEGIC [Suspect]
     Indication: PRODUCT USED FOR UNKNOWN INDICATION
     Route: 048
  3. ALDACTONE [Concomitant]
  4. TEMERIT [Concomitant]
  5. LOXEN [Concomitant]
  6. LIPANTHYL [Concomitant]
  7. INIPOMP [Concomitant]
  8. PIASCLEDINE (FRANCE) [Concomitant]
  9. CHONDROITIN [Concomitant]

REACTIONS (1)
  - Haematoma [Not Recovered/Not Resolved]
